FAERS Safety Report 14253040 (Version 2)
Quarter: 2018Q1

REPORT INFORMATION
  Report Type: Spontaneous
  Country: HK (occurrence: HK)
  Receive Date: 20171205
  Receipt Date: 20180105
  Transmission Date: 20180508
  Serious: Yes (Hospitalization, Other)
  Sender: FDA-Public Use
  Company Number: HK-BAYER-2017-228463

PATIENT
  Sex: Male

DRUGS (2)
  1. ENZALUTAMIDE [Concomitant]
     Active Substance: ENZALUTAMIDE
     Dosage: UNK
     Dates: start: 201709, end: 20171120
  2. XOFIGO [Suspect]
     Active Substance: RADIUM RA-223 DICHLORIDE
     Indication: HORMONE-REFRACTORY PROSTATE CANCER
     Dosage: 1ST INJECTION
     Dates: start: 20171106, end: 201711

REACTIONS (4)
  - Blood alkaline phosphatase decreased [None]
  - Anaemia [None]
  - Thrombocytopenia [None]
  - Prostate cancer [None]

NARRATIVE: CASE EVENT DATE: 20171118
